FAERS Safety Report 4874605-8 (Version None)
Quarter: 2006Q1

REPORT INFORMATION
  Report Type: 
  Country: None (occurrence: None)
  Receive Date: 20060106
  Receipt Date: 20030605
  Transmission Date: 20060701
  Serious: Yes (Hospitalization, Disabling)
  Sender: FDA-Public Use
  Company Number: US-MERCK-0306USA00637

PATIENT
  Age: 30 Year
  Sex: Female
  Weight: 114 kg

DRUGS (7)
  1. VIOXX [Suspect]
     Indication: ARTHRALGIA
     Route: 048
     Dates: start: 19991201, end: 20030901
  2. VIOXX [Suspect]
     Route: 048
     Dates: start: 20010213
  3. VIOXX [Suspect]
     Route: 048
     Dates: start: 20010201
  4. VIOXX [Suspect]
     Indication: SYNOVITIS
     Route: 048
     Dates: start: 19991201, end: 20030901
  5. VIOXX [Suspect]
     Route: 048
     Dates: start: 20010213
  6. VIOXX [Suspect]
     Route: 048
     Dates: start: 20010201
  7. ALEVE [Concomitant]
     Route: 065

REACTIONS (12)
  - ADVERSE EVENT [None]
  - ARRHYTHMIA [None]
  - ARTHRITIS [None]
  - ATRIOVENTRICULAR BLOCK [None]
  - BACK DISORDER [None]
  - BACK INJURY [None]
  - BACK PAIN [None]
  - DEPRESSION [None]
  - HEADACHE [None]
  - HYPERTENSION [None]
  - SWELLING [None]
  - TENDONITIS [None]
